FAERS Safety Report 5384102-1 (Version None)
Quarter: 2007Q3

REPORT INFORMATION
  Report Type: 
  Country: None (occurrence: None)
  Receive Date: 20070711
  Receipt Date: 20070703
  Transmission Date: 20080115
  Serious: Yes (Life-Threatening, Hospitalization)
  Sender: FDA-Public Use
  Company Number: JP-MERCK-0706USA04288

PATIENT
  Age: 56 Year
  Sex: Female

DRUGS (1)
  1. DECADRON [Suspect]
     Indication: ADRENAL DISORDER
     Route: 065
     Dates: start: 20060908, end: 20060919

REACTIONS (1)
  - HYPERKALAEMIA [None]
